FAERS Safety Report 8597002-0 (Version None)
Quarter: 2012Q3

REPORT INFORMATION
  Report Type: 
  Country: None (occurrence: None)
  Receive Date: 20120816
  Receipt Date: 20120813
  Transmission Date: 20120928
  Serious: Yes (Other)
  Sender: FDA-Public Use
  Company Number: DE-ABBOTT-11P-062-0870117-00

PATIENT
  Sex: Female

DRUGS (2)
  1. HUMIRA [Suspect]
     Indication: CROHN'S DISEASE
     Route: 058
     Dates: start: 20110707, end: 20120628
  2. HUMIRA [Suspect]
     Route: 058
     Dates: start: 20120809

REACTIONS (2)
  - INTESTINAL FISTULA [None]
  - ENTEROSTOMY [None]
